FAERS Safety Report 23240573 (Version 1)
Quarter: 2023Q4

REPORT INFORMATION
  Report Type: Spontaneous
  Country: CA (occurrence: CA)
  Receive Date: 20231129
  Receipt Date: 20231129
  Transmission Date: 20240110
  Serious: Yes (Other)
  Sender: FDA-Public Use
  Company Number: CA-BIOVITRUM-2023-CA-018717

PATIENT
  Age: 70 Year
  Sex: Female

DRUGS (18)
  1. ANAKINRA [Suspect]
     Active Substance: ANAKINRA
     Indication: Product used for unknown indication
     Route: 058
  2. ACTEMRA [Suspect]
     Active Substance: TOCILIZUMAB
     Indication: Product used for unknown indication
     Dosage: 1 EVERY 1 WEEKS
  3. ARAVA [Suspect]
     Active Substance: LEFLUNOMIDE
     Indication: Product used for unknown indication
     Route: 065
  4. CANAKINUMAB [Suspect]
     Active Substance: CANAKINUMAB
     Indication: Product used for unknown indication
     Route: 065
  5. COLCHICINE [Suspect]
     Active Substance: COLCHICINE
     Indication: Product used for unknown indication
     Dosage: 2 EVERY 1 DAYS
     Route: 065
  6. COSENTYX [Suspect]
     Active Substance: SECUKINUMAB
     Indication: Ankylosing spondylitis
     Dosage: 1 EVERY 4 WEEKS
     Route: 058
  7. COSENTYX [Suspect]
     Active Substance: SECUKINUMAB
     Dosage: 1 EVERY 4 WEEKS
     Route: 058
  8. METHOTREXATE [Suspect]
     Active Substance: METHOTREXATE
     Indication: Product used for unknown indication
     Dosage: 1 EVERY 1 WEEKS
     Route: 048
  9. METHOTREXATE [Suspect]
     Active Substance: METHOTREXATE
     Dosage: 1 EVERY 1 WEEKS
     Route: 048
  10. METHOTREXATE [Suspect]
     Active Substance: METHOTREXATE
     Route: 058
  11. NAPROXEN [Suspect]
     Active Substance: NAPROXEN
     Indication: Product used for unknown indication
     Route: 065
  12. CIMZIA [Concomitant]
     Active Substance: CERTOLIZUMAB PEGOL
     Indication: Product used for unknown indication
     Route: 058
  13. HUMIRA [Concomitant]
     Active Substance: ADALIMUMAB
     Indication: Product used for unknown indication
     Route: 058
  14. LEFLUNOMIDE [Concomitant]
     Active Substance: LEFLUNOMIDE
     Indication: Product used for unknown indication
     Route: 065
  15. LEFLUNOMIDE [Concomitant]
     Active Substance: LEFLUNOMIDE
     Route: 065
  16. LEFLUNOMIDE [Concomitant]
     Active Substance: LEFLUNOMIDE
     Route: 065
  17. SIMPONI [Concomitant]
     Active Substance: GOLIMUMAB
     Indication: Product used for unknown indication
     Route: 058
  18. TYLENOL [Concomitant]
     Active Substance: ACETAMINOPHEN
     Indication: Product used for unknown indication
     Route: 065

REACTIONS (17)
  - Arthralgia [Unknown]
  - Chondrocalcinosis [Unknown]
  - Contraindicated product administered [Unknown]
  - Diarrhoea [Unknown]
  - Diverticulitis [Unknown]
  - Drug ineffective [Unknown]
  - Drug intolerance [Unknown]
  - Dyspepsia [Unknown]
  - Gastrointestinal disorder [Unknown]
  - Gastrointestinal perforation [Unknown]
  - Hepatotoxicity [Unknown]
  - Hypomagnesaemia [Unknown]
  - Joint injury [Unknown]
  - Mobility decreased [Unknown]
  - Quality of life decreased [Unknown]
  - Spondyloarthropathy [Unknown]
  - Type IV hypersensitivity reaction [Unknown]
